FAERS Safety Report 8989776 (Version 1)
Quarter: 2012Q4

REPORT INFORMATION
  Report Type: 
  Country: US (occurrence: US)
  Receive Date: 20121228
  Receipt Date: 20121228
  Transmission Date: 20130627
  Serious: No
  Sender: FDA-Public Use
  Company Number: US-ASTRAZENECA-2012SE91377

PATIENT
  Sex: Female

DRUGS (2)
  1. NEXIUM [Suspect]
     Route: 048
  2. NEXIUM [Suspect]
     Route: 048

REACTIONS (7)
  - Vitamin D abnormal [Unknown]
  - Chest pain [Unknown]
  - Swelling face [Unknown]
  - Dizziness [Unknown]
  - Hyperhidrosis [Unknown]
  - Intentional drug misuse [Unknown]
  - Drug ineffective [Unknown]
